FAERS Safety Report 8476707-6 (Version None)
Quarter: 2012Q2

REPORT INFORMATION
  Report Type: 
  Country: None (occurrence: None)
  Receive Date: 20120628
  Receipt Date: 20120621
  Transmission Date: 20120825
  Serious: Yes (Other)
  Sender: FDA-Public Use
  Company Number: NL-ABBOTT-12P-114-0905102-00

PATIENT
  Sex: Female
  Weight: 75 kg

DRUGS (2)
  1. HUMIRA [Suspect]
     Indication: PSORIASIS
     Dosage: INITIAL DOSE 80 MG THEN 40 MG
     Route: 058
     Dates: start: 20090618, end: 20091209
  2. USTEKINUMAB [Concomitant]
     Indication: PSORIASIS
     Dates: start: 20090926

REACTIONS (1)
  - CERVICAL DYSPLASIA [None]
